FAERS Safety Report 6192407-X (Version None)
Quarter: 2009Q2

REPORT INFORMATION
  Report Type: 
  Country: None (occurrence: None)
  Receive Date: 20090513
  Receipt Date: 20090504
  Transmission Date: 20091009
  Serious: Yes (Other)
  Sender: FDA-Public Use
  Company Number: 2009AP001853

PATIENT
  Age: 10 Year
  Sex: Male

DRUGS (3)
  1. CYCLOSPORINE [Suspect]
     Indication: IMMUNOSUPPRESSION
     Dosage: 6 MG/KG;QD
  2. PREDNISONE TAB [Suspect]
     Indication: IMMUNOSUPPRESSION
     Dosage: 4 MG/KG;QD
  3. ANTI-THYMOCYTE GLOBULIN NOS [Suspect]
     Indication: IMMUNOSUPPRESSION
     Dosage: 40 MG/KG;QD

REACTIONS (8)
  - DRUG RESISTANCE [None]
  - GINGIVAL HYPERPLASIA [None]
  - HAEMOLYTIC ANAEMIA [None]
  - HEADACHE [None]
  - HYPERTENSION [None]
  - OPERATIVE HAEMORRHAGE [None]
  - PRURITUS [None]
  - URTICARIA [None]
